FAERS Safety Report 6490713-2 (Version None)
Quarter: 2009Q4

REPORT INFORMATION
  Report Type: 
  Country: None (occurrence: None)
  Receive Date: 20091211
  Receipt Date: 20091204
  Transmission Date: 20100525
  Serious: Yes (Other)
  Sender: FDA-Public Use
  Company Number: B0604896A

PATIENT
  Sex: Male
  Weight: 81 kg

DRUGS (4)
  1. VENTOLIN [Suspect]
     Indication: RESPIRATORY DISORDER
     Dosage: 200MCG UNKNOWN
     Route: 055
     Dates: start: 20091110, end: 20091111
  2. FLUTICASONE PROPIONATE [Concomitant]
     Indication: DYSPNOEA
     Dates: start: 20091110
  3. PARACETAMOL [Concomitant]
  4. NASONEX [Concomitant]
     Indication: DYSPNOEA
     Dates: start: 20091110

REACTIONS (3)
  - ANGIOEDEMA [None]
  - DYSPNOEA [None]
  - SWELLING FACE [None]
